FAERS Safety Report 12639607 (Version 1)
Quarter: 2016Q3

REPORT INFORMATION
  Report Type: Spontaneous
  Country: BE (occurrence: BE)
  Receive Date: 20160810
  Receipt Date: 20160810
  Transmission Date: 20161109
  Serious: Yes (Life-Threatening, Other)
  Sender: FDA-Public Use
  Company Number: BE-ACCORD-042975

PATIENT
  Age: 55 Year
  Sex: Male

DRUGS (15)
  1. MYCOPHENOLIC ACID. [Suspect]
     Active Substance: MYCOPHENOLIC ACID
     Indication: IMMUNOSUPPRESSION
  2. METFORMIN [Concomitant]
     Active Substance: METFORMIN HYDROCHLORIDE
     Indication: GLUCOSE TOLERANCE IMPAIRED
     Route: 048
     Dates: start: 2012
  3. COTRIMOXAZOLE [Concomitant]
     Active Substance: SULFAMETHOXAZOLE\TRIMETHOPRIM
     Indication: PSEUDOMONAS INFECTION
     Dosage: SULFAMETHOXAZOLE 400 MG, ?TRIMETHOPRIM 80 MG
     Route: 048
  4. POSACONAZOLE [Suspect]
     Active Substance: POSACONAZOLE
     Indication: ASPERGILLOMA
     Route: 048
     Dates: start: 2012, end: 2012
  5. ABELCET [Suspect]
     Active Substance: AMPHOTERICIN B\DIMYRISTOYLPHOSPHATIDYLCHOLINE, DL-\DIMYRISTOYLPHOSPHATIDYLGLYCEROL, DL-
     Indication: ASPERGILLOMA
     Route: 042
     Dates: start: 2012, end: 2012
  6. CASPOFUNGIN [Concomitant]
     Active Substance: CASPOFUNGIN
     Indication: ASPERGILLUS INFECTION
     Route: 042
     Dates: start: 2012, end: 2012
  7. AMPHOTERICIN B. [Concomitant]
     Active Substance: AMPHOTERICIN B
     Route: 042
     Dates: start: 2012
  8. TACROLIMUS. [Interacting]
     Active Substance: TACROLIMUS
     Indication: IMMUNOSUPPRESSION
  9. CITALOPRAM [Interacting]
     Active Substance: CITALOPRAM HYDROBROMIDE
     Indication: PRODUCT USED FOR UNKNOWN INDICATION
     Dates: start: 2012, end: 2012
  10. METHYLPREDNISOLONE. [Interacting]
     Active Substance: METHYLPREDNISOLONE
     Indication: IMMUNOSUPPRESSION
     Dosage: PREVIOUSLY RECEIVED INTRAVENOUS FOR 4 DAYS AND THEN DOSE REDUCED TO 4 MG.
  11. CIPROFLOXACIN. [Concomitant]
     Active Substance: CIPROFLOXACIN
     Indication: SINUSITIS BACTERIAL
     Route: 048
     Dates: start: 2012
  12. ZOLEDRONIC ACID [Concomitant]
     Active Substance: ZOLEDRONIC ACID
     Indication: THORACIC VERTEBRAL FRACTURE
     Dates: start: 2012
  13. VORICONAZOLE. [Suspect]
     Active Substance: VORICONAZOLE
     Indication: ASPERGILLUS INFECTION
     Route: 048
     Dates: start: 2012, end: 2012
  14. ITRACONAZOLE. [Concomitant]
     Active Substance: ITRACONAZOLE
     Indication: ASPERGILLUS INFECTION
     Route: 048
  15. FENTANYL. [Interacting]
     Active Substance: FENTANYL
     Indication: THORACIC VERTEBRAL FRACTURE
     Dosage: DOSAGE FORM: PATCHES
     Route: 062
     Dates: start: 2012, end: 2012

REACTIONS (14)
  - Nephropathy toxic [Unknown]
  - Abscess jaw [Unknown]
  - Aspergilloma [Unknown]
  - Inappropriate antidiuretic hormone secretion [Unknown]
  - Transplant rejection [Unknown]
  - Aspergillus infection [Unknown]
  - Sinusitis bacterial [Unknown]
  - Pseudomonas infection [Unknown]
  - Glucose tolerance impaired [Unknown]
  - Drug interaction [Unknown]
  - Thoracic vertebral fracture [Unknown]
  - Cytomegalovirus viraemia [Unknown]
  - Stupor [Unknown]
  - Pneumonia pseudomonal [Unknown]

NARRATIVE: CASE EVENT DATE: 2012
